FAERS Safety Report 12118544 (Version 1)
Quarter: 2016Q1

REPORT INFORMATION
  Report Type: Spontaneous
  Country: US (occurrence: US)
  Receive Date: 20160226
  Receipt Date: 20160226
  Transmission Date: 20160526
  Serious: No
  Sender: FDA-Public Use
  Company Number: US-PFIZER INC-2016067536

PATIENT
  Sex: Female

DRUGS (2)
  1. SANCTURA [Suspect]
     Active Substance: TROSPIUM CHLORIDE
  2. TOVIAZ [Suspect]
     Active Substance: FESOTERODINE FUMARATE

REACTIONS (1)
  - Drug ineffective [Unknown]
